FAERS Safety Report 15626764 (Version 2)
Quarter: 2018Q4

REPORT INFORMATION
  Report Type: Spontaneous
  Country: US (occurrence: US)
  Receive Date: 20181116
  Receipt Date: 20181219
  Transmission Date: 20190205
  Serious: Yes (Hospitalization, Other)
  Sender: FDA-Public Use
  Company Number: US-SA-2018SA313775

PATIENT
  Age: 77 Year
  Sex: Male
  Weight: 78 kg

DRUGS (13)
  1. PRALUENT [Suspect]
     Active Substance: ALIROCUMAB
     Indication: HYPERLIPIDAEMIA
     Dosage: 75 MG, QOW
     Route: 058
  2. OMEPRAZOLE. [Concomitant]
     Active Substance: OMEPRAZOLE
  3. NITROGLYCERIN. [Concomitant]
     Active Substance: NITROGLYCERIN
  4. CARVEDILOL. [Concomitant]
     Active Substance: CARVEDILOL
  5. FLUTICASONE PROPIONATE. [Concomitant]
     Active Substance: FLUTICASONE PROPIONATE
  6. PROAIR [SALBUTAMOL SULFATE] [Concomitant]
  7. AMLODIPINE BESYLATE. [Concomitant]
     Active Substance: AMLODIPINE BESYLATE
  8. PANTOPRAZOLE [Concomitant]
     Active Substance: PANTOPRAZOLE
  9. DICLOFENAC [Concomitant]
     Active Substance: DICLOFENAC
  10. ALPRAZOLAM. [Concomitant]
     Active Substance: ALPRAZOLAM
  11. REPATHA [Concomitant]
     Active Substance: EVOLOCUMAB
  12. ALBUTEROL;IPRATROPIUM [Concomitant]
  13. VIAGRA [Concomitant]
     Active Substance: SILDENAFIL CITRATE

REACTIONS (12)
  - Chest discomfort [Unknown]
  - Fall [Unknown]
  - Catheterisation cardiac [Recovered/Resolved]
  - Blood pressure increased [Unknown]
  - Back pain [Not Recovered/Not Resolved]
  - Pain in extremity [Unknown]
  - Contusion [Unknown]
  - Confusional state [Unknown]
  - Myalgia [Not Recovered/Not Resolved]
  - Chest pain [Unknown]
  - Arrhythmia [Unknown]
  - Peripheral swelling [Unknown]

NARRATIVE: CASE EVENT DATE: 20181108
